FAERS Safety Report 18064963 (Version 1)
Quarter: 2020Q3

REPORT INFORMATION
  Report Type: Spontaneous
  Country: US (occurrence: US)
  Receive Date: 20200723
  Receipt Date: 20200723
  Transmission Date: 20201103
  Serious: Yes (Life-Threatening, Hospitalization)
  Sender: FDA-Public Use
  Company Number: None

PATIENT
  Age: 76 Year
  Sex: Female

DRUGS (1)
  1. PREDNISONE (PREDNISONE 20MG TAB) [Suspect]
     Active Substance: PREDNISONE
     Route: 048
     Dates: start: 20200428, end: 20200521

REACTIONS (6)
  - Hallucination [None]
  - Confusional state [None]
  - Mental impairment [None]
  - Hyperglycaemia [None]
  - Mental status changes [None]
  - Homicidal ideation [None]

NARRATIVE: CASE EVENT DATE: 20200521
